FAERS Safety Report 13733769 (Version 2)
Quarter: 2017Q3

REPORT INFORMATION
  Report Type: Spontaneous
  Country: US (occurrence: US)
  Receive Date: 20170707
  Receipt Date: 20170818
  Transmission Date: 20171127
  Serious: Yes (Hospitalization, Other)
  Sender: FDA-Public Use
  Company Number: US-TEVA-783735USA

PATIENT
  Age: 20 Year
  Sex: Female

DRUGS (1)
  1. SPRINTEC [Suspect]
     Active Substance: ETHINYL ESTRADIOL\NORGESTIMATE
     Indication: CONTRACEPTION
     Dosage: 0.180 MG/ 0.035 MG; 0.215 MG / 0.035 MG; 0.250 MG / 0.035 MG
     Route: 065
     Dates: start: 201603

REACTIONS (19)
  - Vaginal haemorrhage [Unknown]
  - Blood pressure systolic abnormal [Unknown]
  - Altered state of consciousness [Unknown]
  - Pallor [Unknown]
  - Myalgia [Unknown]
  - Mobility decreased [Unknown]
  - Tremor [Unknown]
  - Pregnancy on contraceptive [Unknown]
  - Dizziness [Unknown]
  - Hormone level abnormal [Unknown]
  - Skin discolouration [Unknown]
  - Musculoskeletal stiffness [Unknown]
  - Anaemia [Unknown]
  - Ectopic pregnancy [Unknown]
  - Loss of consciousness [Unknown]
  - Gait disturbance [Unknown]
  - Hypotension [Unknown]
  - Vomiting [Unknown]
  - Pelvic pain [Unknown]

NARRATIVE: CASE EVENT DATE: 2017
